FAERS Safety Report 22896863 (Version 2)
Quarter: 2023Q4

REPORT INFORMATION
  Report Type: Spontaneous
  Country: US (occurrence: US)
  Receive Date: 20230902
  Receipt Date: 20231025
  Transmission Date: 20240110
  Serious: No
  Sender: FDA-Public Use
  Company Number: US-drreddys-SPO/USA/23/0171035

PATIENT
  Sex: Female

DRUGS (1)
  1. OMEPRAZOLE MAGNESIUM [Suspect]
     Active Substance: OMEPRAZOLE MAGNESIUM
     Indication: Product used for unknown indication

REACTIONS (3)
  - Oropharyngeal pain [Unknown]
  - Product physical issue [Unknown]
  - Product quality issue [Unknown]
